FAERS Safety Report 25700956 (Version 2)
Quarter: 2025Q4

REPORT INFORMATION
  Report Type: Spontaneous
  Country: US (occurrence: US)
  Receive Date: 20250819
  Receipt Date: 20251127
  Transmission Date: 20260118
  Serious: No
  Sender: SANOFI AVENTIS
  Company Number: US-SA-2025SA245712

PATIENT
  Age: 63 Year
  Sex: Female

DRUGS (1)
  1. DUPIXENT [Suspect]
     Active Substance: DUPILUMAB
     Indication: Asthma
     Dosage: 300 MG, QOW
     Route: 058
     Dates: start: 20250814

REACTIONS (6)
  - Nausea [Unknown]
  - Dyspnoea [Unknown]
  - Gait disturbance [Unknown]
  - Infection [Unknown]
  - Oral discharge [Unknown]
  - Hypophagia [Unknown]

NARRATIVE: CASE EVENT DATE: 20250101
